FAERS Safety Report 9087241 (Version 1)
Quarter: 2013Q1

REPORT INFORMATION
  Report Type: Report from Study
  Country: US (occurrence: US)
  Receive Date: 20130201
  Receipt Date: 20130201
  Transmission Date: 20140127
  Serious: No
  Sender: FDA-Public Use
  Company Number: US-ABBOTT-12P-163-1019059-00

PATIENT
  Age: 39 Year
  Sex: Female

DRUGS (8)
  1. HUMIRA [Suspect]
     Indication: RHEUMATOID ARTHRITIS
     Dosage: INITIAL DOSE
     Dates: start: 20121206
  2. ARAVA [Concomitant]
     Indication: RHEUMATOID ARTHRITIS
     Dosage: DAILY
  3. METHOTREXATE [Concomitant]
     Indication: PRODUCT USED FOR UNKNOWN INDICATION
     Dosage: 5 TABLETS WEEKLY
  4. ULTRAM [Concomitant]
     Indication: PAIN
  5. FOLIC ACID [Concomitant]
     Indication: PRODUCT USED FOR UNKNOWN INDICATION
     Dosage: DAILY
  6. HYDROCODONE [Concomitant]
     Indication: PAIN
     Dosage: 7.5-325 MG
  7. HYDROCODONE [Concomitant]
     Indication: PAIN
  8. FLEXERIL [Concomitant]
     Indication: INSOMNIA
     Dosage: AT BEDTIME

REACTIONS (3)
  - Injection site pain [Recovered/Resolved]
  - Device malfunction [Unknown]
  - Incorrect dose administered [Unknown]
